FAERS Safety Report 17186278 (Version 1)
Quarter: 2019Q4

REPORT INFORMATION
  Report Type: Report from Study
  Country: FR (occurrence: FR)
  Receive Date: 20191220
  Receipt Date: 20191220
  Transmission Date: 20200122
  Serious: Yes (Hospitalization)
  Sender: FDA-Public Use
  Company Number: FR-JNJFOC-20191217017

PATIENT
  Age: 42 Year
  Sex: Male

DRUGS (4)
  1. USTEKINUMAB [Suspect]
     Active Substance: USTEKINUMAB
     Indication: PSORIASIS
     Route: 058
     Dates: start: 20190625
  2. DERMOVAL                           /00008501/ [Concomitant]
     Active Substance: CLOBETASOL PROPIONATE
     Route: 065
     Dates: start: 20190626, end: 20190626
  3. USTEKINUMAB [Suspect]
     Active Substance: USTEKINUMAB
     Route: 058
     Dates: start: 20190726
  4. DIPROSONE NEOMYCINE [Concomitant]
     Route: 065
     Dates: start: 20190626, end: 20190626

REACTIONS (1)
  - Epiglottic carcinoma [Unknown]

NARRATIVE: CASE EVENT DATE: 20191115
